FAERS Safety Report 9922664 (Version 1)
Quarter: 2014Q1

REPORT INFORMATION
  Report Type: Spontaneous
  Country: GB (occurrence: GB)
  Receive Date: 20140225
  Receipt Date: 20140225
  Transmission Date: 20141002
  Serious: Yes (Hospitalization)
  Sender: FDA-Public Use
  Company Number: GB-TEVA-462430ISR

PATIENT
  Age: 29 Year
  Sex: Male

DRUGS (1)
  1. TRIMETHOPRIM [Suspect]
     Indication: PROSTATITIS
     Dosage: 400 MILLIGRAM DAILY;
     Route: 048
     Dates: start: 20131226, end: 20140121

REACTIONS (8)
  - Headache [Recovered/Resolved]
  - Rash generalised [Recovering/Resolving]
  - Liver function test abnormal [Not Recovered/Not Resolved]
  - Pruritus [Unknown]
  - Body temperature increased [Unknown]
  - Decreased appetite [Unknown]
  - Vomiting [Unknown]
  - Abnormal clotting factor [Unknown]
